FAERS Safety Report 5086137-5 (Version None)
Quarter: 2006Q3

REPORT INFORMATION
  Report Type: 
  Country: None (occurrence: None)
  Receive Date: 20060818
  Receipt Date: 20060808
  Transmission Date: 20061208
  Serious: Yes (Life-Threatening, Hospitalization, Disabling, Other)
  Sender: FDA-Public Use
  Company Number: 2006088436

PATIENT
  Age: 70 Year
  Sex: Male
  Weight: 56 kg

DRUGS (4)
  1. IRINOTECAN HYDROCHLORIDE SOLUTION [Suspect]
     Indication: COLORECTAL CANCER METASTATIC
     Dosage: 300 MG (125 MG/M2, FREQUENCY: ONCE INTERVAL: EVERY 2 WEE)
  2. IRINOTECAN HYDROCHLORIDE SOLUTION [Suspect]
     Indication: METASTASES TO LUNG
     Dosage: 300 MG (125 MG/M2, FREQUENCY: ONCE INTERVAL: EVERY 2 WEE)
  3. FLUOROURACIL [Concomitant]
  4. AVASTIN [Concomitant]

REACTIONS (3)
  - EMPHYSEMA [None]
  - MUCOSAL INFLAMMATION [None]
  - PULMONARY FIBROSIS [None]
